FAERS Safety Report 7256612-3 (Version None)
Quarter: 2011Q1

REPORT INFORMATION
  Report Type: 
  Country: None (occurrence: None)
  Receive Date: 20110129
  Receipt Date: 20100805
  Transmission Date: 20110831
  Serious: No
  Sender: FDA-Public Use
  Company Number: US-ABBOTT-10P-163-0663022-00

PATIENT
  Sex: Female
  Weight: 103.51 kg

DRUGS (4)
  1. BENICAR [Concomitant]
     Indication: HYPERTENSION
     Dosage: 40/25 MG DAILY
  2. HUMIRA [Suspect]
     Indication: RHEUMATOID ARTHRITIS
     Route: 058
     Dates: start: 20080101
  3. ZOCOR [Suspect]
     Indication: BLOOD CHOLESTEROL INCREASED
  4. LEFLUNOMIDE [Concomitant]
     Indication: RHEUMATOID ARTHRITIS

REACTIONS (3)
  - FATIGUE [None]
  - NAUSEA [None]
  - INJECTION SITE PAIN [None]
